FAERS Safety Report 9364569 (Version 3)
Quarter: 2013Q3

REPORT INFORMATION
  Report Type: Report from Study
  Country: AU (occurrence: AU)
  Receive Date: 20130624
  Receipt Date: 20130701
  Transmission Date: 20140515
  Serious: Yes (Hospitalization)
  Sender: FDA-Public Use
  Company Number: PHHY2013AU063857

PATIENT
  Age: 44 Year
  Sex: Female

DRUGS (11)
  1. CARBAMAZEPINE [Suspect]
     Dosage: UNK UKN, UNK
     Dates: end: 20120326
  2. CARBAMAZEPINE [Suspect]
     Dosage: 200 MG, UNK
     Dates: start: 201204
  3. CLOPINE [Suspect]
     Indication: SCHIZOPHRENIA, PARANOID TYPE
     Dosage: UNK UKN, UNK
     Dates: start: 20120328, end: 20120504
  4. PALIPERIDONE [Concomitant]
     Dosage: 150 MG (MONTHLY), UNK
     Route: 030
  5. OLANZAPINE [Concomitant]
     Dosage: 10 MG, NOCTE (AS REPORTED)
     Route: 048
     Dates: end: 20120412
  6. OLANZAPINE [Concomitant]
     Dosage: 5 MG, BID
  7. KEPPRA [Concomitant]
     Dosage: 250 MG, BID
     Route: 048
     Dates: start: 20120326, end: 201204
  8. FISH OIL [Concomitant]
     Dosage: 2 DF, MANE
     Route: 048
  9. SODIUM VALPROATE [Concomitant]
     Dosage: UNK UKN, UNK
     Dates: start: 20120323, end: 20120326
  10. INVEGA SUSTENNA [Concomitant]
     Dosage: 100 MG, MONTHLY (LAST DOSE ON 08 JUN 2013)
  11. ESCITALOPRAM [Concomitant]
     Dosage: 10 MG, MANE (AS REPORTED)

REACTIONS (5)
  - Schizophrenia, disorganised type [Unknown]
  - Delusion [Unknown]
  - Hallucination, auditory [Unknown]
  - Mental disorder [Unknown]
  - Neutrophil count decreased [Recovered/Resolved]
